FAERS Safety Report 5167590-5 (Version None)
Quarter: 2006Q4

REPORT INFORMATION
  Report Type: 
  Country: None (occurrence: None)
  Receive Date: 20060918
  Receipt Date: 20050809
  Transmission Date: 20070319
  Serious: Yes (Hospitalization, Other)
  Sender: FDA-Public Use
  Company Number: PRIUSA1999004650

PATIENT
  Age: 44 Year
  Weight: 68.0396 kg

DRUGS (5)
  1. TOPAMAX [Suspect]
     Indication: EPILEPSY
     Dosage: SEE IMAGE
     Route: 048
     Dates: start: 19990101, end: 20040901
  2. DILANTIN (PHENYTOIN SODIUM) TABLETS [Concomitant]
  3. PHENOBARBITAL (PHENOBARBITAL) TABLETS [Concomitant]
  4. ESTRADIOL [Concomitant]
  5. HYDROCHLOROTHIAZIDE [Concomitant]

REACTIONS (28)
  - ABNORMAL DREAMS [None]
  - AGGRESSION [None]
  - AGITATION [None]
  - ANGER [None]
  - ANHIDROSIS [None]
  - ANOREXIA [None]
  - ANXIETY [None]
  - CONFUSIONAL STATE [None]
  - DEPRESSION [None]
  - DIPLOPIA [None]
  - DRY MOUTH [None]
  - GINGIVAL BLEEDING [None]
  - GRAND MAL CONVULSION [None]
  - HALLUCINATION [None]
  - LYMPHADENOPATHY [None]
  - MANIA [None]
  - MEMORY IMPAIRMENT [None]
  - MIGRAINE [None]
  - NAIL DISCOLOURATION [None]
  - NEUROPATHY [None]
  - PARANOIA [None]
  - PSYCHOTIC DISORDER [None]
  - SINUSITIS [None]
  - SPEECH DISORDER [None]
  - SUICIDE ATTEMPT [None]
  - THIRST DECREASED [None]
  - VISUAL FIELD DEFECT [None]
  - WEIGHT DECREASED [None]
